FAERS Safety Report 23529516 (Version 4)
Quarter: 2024Q3

REPORT INFORMATION
  Report Type: Spontaneous
  Country: CA (occurrence: CA)
  Receive Date: 20240216
  Receipt Date: 20240722
  Transmission Date: 20241017
  Serious: Yes (Death, Hospitalization, Other)
  Sender: AMGEN
  Company Number: CA-PFIZER INC-202400038162

PATIENT
  Age: 61 Year
  Sex: Female

DRUGS (20)
  1. ENBREL [Suspect]
     Active Substance: BENZYL ALCOHOL\ETANERCEPT
     Indication: Product used for unknown indication
     Dosage: 1 DOSAGE FORM
     Route: 065
  2. ENBREL [Suspect]
     Active Substance: BENZYL ALCOHOL\ETANERCEPT
     Dosage: UNK
     Route: 065
  3. DILTIAZEM [Concomitant]
     Active Substance: DILTIAZEM
     Indication: Hypertension
     Dosage: 1 DOSAGE FORM
  4. DILTIAZEM [Concomitant]
     Active Substance: DILTIAZEM
     Indication: Blood pressure measurement
     Dosage: UNK
  5. GABAPENTIN [Concomitant]
     Active Substance: GABAPENTIN
     Indication: Product used for unknown indication
     Dosage: 1 DOSAGE FORM
  6. GABAPENTIN [Concomitant]
     Active Substance: GABAPENTIN
     Dosage: UNK
  7. VITAMIN B [Concomitant]
     Active Substance: VITAMIN B
     Indication: Product used for unknown indication
     Dosage: 1 DOSAGE FORM
     Route: 065
  8. VITAMIN B [Concomitant]
     Active Substance: VITAMIN B
     Dosage: UNK
  9. FOLIC ACID [Concomitant]
     Active Substance: FOLIC ACID
     Indication: Product used for unknown indication
     Dosage: 1 DOSAGE FORM
     Route: 065
  10. FOLIC ACID [Concomitant]
     Active Substance: FOLIC ACID
     Dosage: UNK
  11. VITAMIN B12 [Concomitant]
     Active Substance: CYANOCOBALAMIN
     Indication: Product used for unknown indication
     Dosage: 1 DOSAGE FORM
     Route: 065
  12. VITAMIN B12 [Concomitant]
     Active Substance: CYANOCOBALAMIN
     Dosage: UNK
  13. LEFLUNOMIDE [Concomitant]
     Active Substance: LEFLUNOMIDE
     Indication: Product used for unknown indication
     Dosage: 1 DOSAGE FORM
     Route: 065
  14. LEFLUNOMIDE [Concomitant]
     Active Substance: LEFLUNOMIDE
     Dosage: UNK
  15. AZATHIOPRINE [Concomitant]
     Active Substance: AZATHIOPRINE
     Indication: Product used for unknown indication
     Dosage: 1 DOSAGE FORM
  16. AZATHIOPRINE [Concomitant]
     Active Substance: AZATHIOPRINE
     Dosage: UNK
  17. SYNTHROID [Concomitant]
     Active Substance: LEVOTHYROXINE SODIUM
     Indication: Product used for unknown indication
     Dosage: 1 DOSAGE FORM
  18. SYNTHROID [Concomitant]
     Active Substance: LEVOTHYROXINE SODIUM
     Dosage: UNK
  19. RUXIENCE [Concomitant]
     Active Substance: RITUXIMAB-PVVR
     Indication: Rheumatoid arthritis
     Dosage: 1000 MILLIGRAM
     Route: 042
  20. VITAMIN B COMPLEX [Concomitant]
     Active Substance: CYANOCOBALAMIN\DEXPANTHENOL\NIACINAMIDE\PYRIDOXINE HYDROCHLORIDE\RIBOFLAVIN 5^-PHOSPHATE SODIUM\THIA
     Dosage: UNK

REACTIONS (7)
  - Death [Fatal]
  - Blood potassium decreased [Fatal]
  - Internal haemorrhage [Fatal]
  - Haemoglobin decreased [Fatal]
  - Pulmonary oedema [Fatal]
  - Hypotension [Fatal]
  - Cystitis [Fatal]

NARRATIVE: CASE EVENT DATE: 20240207
